FAERS Safety Report 10862559 (Version 1)
Quarter: 2015Q1

REPORT INFORMATION
  Report Type: Spontaneous
  Country: JP (occurrence: JP)
  Receive Date: 20150223
  Receipt Date: 20150223
  Transmission Date: 20150721
  Serious: Yes (Hospitalization)
  Sender: FDA-Public Use
  Company Number: JP-ABBVIE-15P-087-1347142-00

PATIENT
  Age: 63 Year
  Sex: Female

DRUGS (3)
  1. SODIUM VALPROATE [Suspect]
     Active Substance: VALPROATE SODIUM
     Indication: SCHIZOPHRENIA
     Route: 065
     Dates: start: 2013, end: 201402
  2. OLANZAPINE. [Suspect]
     Active Substance: OLANZAPINE
     Indication: SCHIZOPHRENIA
     Route: 065
     Dates: start: 2013, end: 201402
  3. FLUNITRAZEPAM [Suspect]
     Active Substance: FLUNITRAZEPAM
     Indication: SCHIZOPHRENIA
     Route: 065
     Dates: start: 2013, end: 201402

REACTIONS (6)
  - Electrocardiogram J wave [Recovered/Resolved]
  - Somnolence [None]
  - Hypothermia [Recovered/Resolved]
  - Delirium [None]
  - Sinus bradycardia [Recovered/Resolved]
  - Muscle rigidity [None]

NARRATIVE: CASE EVENT DATE: 201402
